FAERS Safety Report 21278747 (Version 2)
Quarter: 2022Q4

REPORT INFORMATION
  Report Type: Spontaneous
  Country: CA (occurrence: CA)
  Receive Date: 20220901
  Receipt Date: 20221025
  Transmission Date: 20230113
  Serious: Yes (Other)
  Sender: FDA-Public Use
  Company Number: CA-CELGENE-CAN-20200800568

PATIENT
  Age: 1 Day
  Sex: Female
  Weight: 1.987 kg

DRUGS (1)
  1. REVLIMID [Suspect]
     Active Substance: LENALIDOMIDE
     Indication: Product used for unknown indication
     Dosage: 21/28 DAYS
     Route: 065
     Dates: start: 20190315, end: 20200803

REACTIONS (2)
  - Paternal exposure timing unspecified [Unknown]
  - Foetal growth restriction [Unknown]
